FAERS Safety Report 5127187-X (Version None)
Quarter: 2006Q4

REPORT INFORMATION
  Report Type: 
  Country: None (occurrence: None)
  Receive Date: 20061010
  Receipt Date: 20061002
  Transmission Date: 20070319
  Serious: Yes (Hospitalization, Other)
  Sender: FDA-Public Use
  Company Number: EM2006-0533

PATIENT
  Age: 62 Year
  Sex: Female

DRUGS (1)
  1. TOBI [Suspect]
     Indication: LUNG INFECTION PSEUDOMONAL
     Dosage: 300 MG, INHALATION
     Route: 055

REACTIONS (5)
  - HAEMODIALYSIS [None]
  - LUNG INFECTION PSEUDOMONAL [None]
  - PATHOGEN RESISTANCE [None]
  - RENAL FAILURE ACUTE [None]
  - STAPHYLOCOCCAL INFECTION [None]
